FAERS Safety Report 5081913-7 (Version None)
Quarter: 2006Q3

REPORT INFORMATION
  Report Type: 
  Country: None (occurrence: None)
  Receive Date: 20060816
  Receipt Date: 20060807
  Transmission Date: 20061208
  Serious: Yes (Hospitalization)
  Sender: FDA-Public Use
  Company Number: PHBS2006US12107

PATIENT
  Age: 41 Year
  Sex: Female

DRUGS (6)
  1. METOPROLOL TARTRATE [Suspect]
  2. EPLERENONE [Suspect]
  3. FLUID/ELECTROLYTE REPLACEMENT THERAPY [Concomitant]
     Route: 048
  4. OXYGEN [Concomitant]
  5. FUROSEMIDE [Suspect]
     Dosage: 10 MG, UNK
     Route: 042
  6. NEUROHORMONAL BLOCKING AGENTS [Suspect]

REACTIONS (4)
  - CAESAREAN SECTION [None]
  - DRUG EXPOSURE DURING PREGNANCY [None]
  - MATERNAL CONDITION AFFECTING FOETUS [None]
  - NORMAL NEWBORN [None]
